FAERS Safety Report 19938007 (Version 1)
Quarter: 2021Q4

REPORT INFORMATION
  Report Type: Spontaneous
  Country: US (occurrence: US)
  Receive Date: 20211011
  Receipt Date: 20211011
  Transmission Date: 20220304
  Serious: No
  Sender: FDA-Public Use
  Company Number: US-ROCHE-2711757

PATIENT
  Age: 62 Year
  Sex: Male

DRUGS (1)
  1. ZELBORAF [Suspect]
     Active Substance: VEMURAFENIB
     Indication: Product used for unknown indication
     Dosage: 4 TAB
     Route: 048
     Dates: start: 202010

REACTIONS (1)
  - Rash [Unknown]

NARRATIVE: CASE EVENT DATE: 20201102
